FAERS Safety Report 8085817 (Version 2)
Quarter: 2012Q4

REPORT INFORMATION
  Report Type: Spontaneous
  Country: GB (occurrence: None)
  Receive Date: 20110802
  Receipt Date: 20120822
  Transmission Date: 20130627
  Serious: Yes (Disabling)
  Sender: FDA-Public Use
  Company Number: 2011AP001559

PATIENT
  Age: 51 Year
  Sex: Male

DRUGS (2)
  1. LEFLUNOMIDE [Suspect]
     Indication: PRODUCT USED FOR UNKNOWN INDICATION
     Dosage: PO
     Route: 048
     Dates: start: 20110104, end: 20110713
  2. OMEPRAZOLE [Concomitant]

REACTIONS (6)
  - Contusion [None]
  - Chest pain [None]
  - Muscle rupture [None]
  - Back pain [None]
  - Tenderness [None]
  - Impaired work ability [None]
